FAERS Safety Report 10039675 (Version 2)
Quarter: 2014Q2

REPORT INFORMATION
  Report Type: Report from Study
  Country: VE (occurrence: VE)
  Receive Date: 20140326
  Receipt Date: 20140520
  Transmission Date: 20141212
  Serious: Yes (Hospitalization, Other)
  Sender: FDA-Public Use
  Company Number: VE-ABBVIE-14P-178-1215878-00

PATIENT
  Age: 60 Year
  Sex: Female

DRUGS (2)
  1. HUMIRA [Suspect]
     Indication: RHEUMATOID ARTHRITIS
     Route: 058
     Dates: start: 200801, end: 201402
  2. METHOTREXATE [Concomitant]
     Indication: RHEUMATOID ARTHRITIS
     Dosage: 2.5 MG DAILY, 4 DAYS A WEEK
     Route: 048
     Dates: start: 200801, end: 201402

REACTIONS (5)
  - Gastritis haemorrhagic [Recovered/Resolved]
  - Fall [Unknown]
  - Hip fracture [Recovering/Resolving]
  - Hip fracture [Recovering/Resolving]
  - Femur fracture [Recovering/Resolving]
